FAERS Safety Report 6782497-5 (Version None)
Quarter: 2010Q2

REPORT INFORMATION
  Report Type: 
  Country: None (occurrence: None)
  Receive Date: 20100616
  Receipt Date: 20100601
  Transmission Date: 20101027
  Serious: Yes (Other)
  Sender: FDA-Public Use
  Company Number: 2010-1505

PATIENT
  Age: 44 Year
  Sex: Male
  Weight: 72.6 kg

DRUGS (6)
  1. DYSPORT [Suspect]
     Indication: OFF LABEL USE
     Dosage: 100 UNITS (100 UNITS SINGLE CYCLE)
     Dates: start: 20100423, end: 20100423
  2. DYSPORT [Suspect]
     Indication: SKIN WRINKLING
     Dosage: 100 UNITS (100 UNITS SINGLE CYCLE)
     Dates: start: 20100423, end: 20100423
  3. . [Concomitant]
  4. RESTYLANE (HYALURONIC ACID) [Concomitant]
  5. RADIESSE (CALCIUM COMPOUNDS) [Concomitant]
  6. MULTIVITAMIN (MULTIVITAMIN) [Concomitant]

REACTIONS (5)
  - DYSPHAGIA [None]
  - HYPERSENSITIVITY [None]
  - HYPOAESTHESIA [None]
  - HYPOAESTHESIA FACIAL [None]
  - SWOLLEN TONGUE [None]
